FAERS Safety Report 22123947 (Version 1)
Quarter: 2023Q1

REPORT INFORMATION
  Report Type: Spontaneous
  Country: FR (occurrence: FR)
  Receive Date: 20230322
  Receipt Date: 20230322
  Transmission Date: 20230418
  Serious: Yes (Other)
  Sender: FDA-Public Use
  Company Number: FR-GSKCCFEMEA-Case-01694199_AE-68746

PATIENT

DRUGS (1)
  1. NUCALA [Suspect]
     Active Substance: MEPOLIZUMAB
     Indication: Asthma
     Dosage: 100 MG, Z (EVERY 4 WEEKS)

REACTIONS (4)
  - Hepatic haemorrhage [Unknown]
  - Granulomatosis with polyangiitis [Unknown]
  - Immunosuppression [Unknown]
  - Infection [Unknown]
